FAERS Safety Report 8125558-0 (Version None)
Quarter: 2012Q1

REPORT INFORMATION
  Report Type: 
  Country: None (occurrence: None)
  Receive Date: 20120209
  Receipt Date: 20120208
  Transmission Date: 20120608
  Serious: Yes (Other)
  Sender: FDA-Public Use
  Company Number: US-TEVA-321567USA

PATIENT
  Sex: Female

DRUGS (2)
  1. CYCLOBENZAPRINE [Suspect]
     Indication: MUSCLE STRAIN
     Dosage: 15 MILLIGRAM; TAKE 1-2 TABS AS NEEDED
     Route: 048
  2. NABUMETONE [Suspect]
     Indication: MUSCLE STRAIN
     Dosage: 1000 MILLIGRAM; 1-2 TABS AS NEEDED
     Route: 048

REACTIONS (5)
  - HYPERSENSITIVITY [None]
  - SENSITISATION [None]
  - ASTHENIA [None]
  - VIITH NERVE PARALYSIS [None]
  - HYPOAESTHESIA [None]
